FAERS Safety Report 15465682 (Version 1)
Quarter: 2018Q4

REPORT INFORMATION
  Report Type: Spontaneous
  Country: ES (occurrence: ES)
  Receive Date: 20181004
  Receipt Date: 20181004
  Transmission Date: 20190204
  Serious: Yes (Life-Threatening, Hospitalization)
  Sender: FDA-Public Use
  Company Number: ES-ELI_LILLY_AND_COMPANY-ES201809011806

PATIENT
  Age: 67 Year
  Sex: Female

DRUGS (3)
  1. ERBITUX [Suspect]
     Active Substance: CETUXIMAB
     Indication: COLORECTAL ADENOCARCINOMA
     Dosage: 970 MG, UNKNOWN
     Route: 041
     Dates: start: 20180103, end: 20180904
  2. FLUOROURACILO [Suspect]
     Active Substance: FLUOROURACIL
     Indication: COLORECTAL ADENOCARCINOMA
     Dosage: 4656 MG, UNKNOWN
     Route: 042
     Dates: start: 20180103, end: 20180904
  3. OXALIPLATIN HOSPIRA [Suspect]
     Active Substance: OXALIPLATIN
     Indication: COLORECTAL ADENOCARCINOMA
     Dosage: 145 MG, UNKNOWN
     Route: 041
     Dates: start: 20180103, end: 20180904

REACTIONS (2)
  - Gastrointestinal toxicity [Recovered/Resolved]
  - Pancytopenia [Recovered/Resolved]

NARRATIVE: CASE EVENT DATE: 20180829
